APPROVED DRUG PRODUCT: TELMISARTAN AND HYDROCHLOROTHIAZIDE
Active Ingredient: HYDROCHLOROTHIAZIDE; TELMISARTAN
Strength: 12.5MG;80MG
Dosage Form/Route: TABLET;ORAL
Application: A202544 | Product #002 | TE Code: AB
Applicant: GLENMARK PHARMACEUTICALS LTD
Approved: Mar 4, 2019 | RLD: No | RS: No | Type: RX